FAERS Safety Report 16734440 (Version 1)
Quarter: 2019Q3

REPORT INFORMATION
  Report Type: Spontaneous
  Country: IE (occurrence: IE)
  Receive Date: 20190823
  Receipt Date: 20190823
  Transmission Date: 20191005
  Serious: Yes (Hospitalization)
  Sender: FDA-Public Use
  Company Number: IE-TEVA-2019-IE-1098276

PATIENT
  Age: 2 Year
  Sex: Male
  Weight: 11.6 kg

DRUGS (3)
  1. AMOXICILLIN. [Concomitant]
     Active Substance: AMOXICILLIN
     Indication: COUGH
     Route: 042
  2. SALBUTAMOL [Suspect]
     Active Substance: ALBUTEROL
     Indication: COUGH
     Route: 055
  3. SALBUTAMOL [Suspect]
     Active Substance: ALBUTEROL
     Dosage: THE DRUG WAS ADMINISTERED VIA NEBULISER
     Route: 065

REACTIONS (2)
  - Hypokalaemia [Recovered/Resolved]
  - Metabolic alkalosis [Recovered/Resolved]
